FAERS Safety Report 24435455 (Version 2)
Quarter: 2024Q4

REPORT INFORMATION
  Report Type: Spontaneous
  Country: MX (occurrence: MX)
  Receive Date: 20241015
  Receipt Date: 20241118
  Transmission Date: 20250115
  Serious: Yes (Other)
  Sender: NOVO NORDISK
  Company Number: MX-NOVOPROD-1289491

PATIENT
  Age: 37 Year
  Sex: Female
  Weight: 63 kg

DRUGS (1)
  1. INSULIN ASPART [Suspect]
     Active Substance: INSULIN ASPART
     Indication: Latent autoimmune diabetes in adults
     Dosage: 6 TO 8 IU, FIVE TIMES A DAY
     Route: 058

REACTIONS (9)
  - Hyperglycaemia [Unknown]
  - Device loosening [Unknown]
  - Device failure [Unknown]
  - Device malfunction [Unknown]
  - Device breakage [Unknown]
  - Device leakage [Unknown]
  - Wrong technique in product usage process [Unknown]
  - Product prescribing error [Unknown]
  - Product use in unapproved indication [Unknown]
